FAERS Safety Report 8036950-7 (Version None)
Quarter: 2012Q1

REPORT INFORMATION
  Report Type: 
  Country: None (occurrence: None)
  Receive Date: 20120111
  Receipt Date: 20120109
  Transmission Date: 20120608
  Serious: No
  Sender: FDA-Public Use
  Company Number: US-PFIZER INC-2012006594

PATIENT
  Sex: Female
  Weight: 65.8 kg

DRUGS (1)
  1. ESTRING [Suspect]
     Indication: HORMONE LEVEL ABNORMAL
     Dosage: 2 MG, UNK
     Route: 067
     Dates: start: 20111223, end: 20111224

REACTIONS (2)
  - CIRCUMSTANCE OR INFORMATION CAPABLE OF LEADING TO MEDICATION ERROR [None]
  - VULVOVAGINAL DISCOMFORT [None]
